FAERS Safety Report 12273361 (Version 1)
Quarter: 2016Q2

REPORT INFORMATION
  Report Type: Spontaneous
  Country: CN (occurrence: CN)
  Receive Date: 20160415
  Receipt Date: 20160415
  Transmission Date: 20160815
  Serious: Yes (Hospitalization)
  Sender: FDA-Public Use
  Company Number: CN-PFIZER INC-2016212385

PATIENT
  Age: 68 Year
  Sex: Female
  Weight: 52 kg

DRUGS (9)
  1. GLUCOTROL XL [Concomitant]
     Active Substance: GLIPIZIDE
     Indication: HYPERGLYCAEMIA
     Dosage: 5 MG, 1X/DAY
     Route: 048
     Dates: start: 20150923, end: 20151221
  2. ASPIRIN (E.C.) [Concomitant]
     Active Substance: ASPIRIN
     Indication: THROMBOSIS
     Dosage: 100 MG, 1X/DAY
     Route: 048
     Dates: start: 20150923, end: 20151221
  3. ISOSORBIDE MONONITRATE. [Concomitant]
     Active Substance: ISOSORBIDE MONONITRATE
     Indication: CORONARY ARTERY DISEASE
     Dosage: 20 MG, 2X/DAY
     Route: 048
     Dates: start: 20150923, end: 20151214
  4. BETALOC [Concomitant]
     Active Substance: METOPROLOL TARTRATE
     Indication: CARDIAC FAILURE
     Dosage: 71.25 MG, 1X/DAY
     Route: 048
     Dates: start: 20150923, end: 20151214
  5. VASOREL [Concomitant]
     Indication: CARDIAC DISORDER
     Dosage: 20 MG, 3X/DAY
     Route: 048
     Dates: start: 20150923, end: 20151214
  6. CLOPIDOGREL HYDROGEN SULFATE [Concomitant]
     Active Substance: CLOPIDOGREL BISULFATE
     Indication: ANTICOAGULANT THERAPY
     Dosage: 75 MG, 1X/DAY
     Route: 048
     Dates: start: 20150923, end: 20151221
  7. GLUCOBAY [Concomitant]
     Active Substance: ACARBOSE
     Indication: HYPERGLYCAEMIA
     Dosage: 50 MG, 3X/DAY
     Dates: start: 20150923, end: 20151221
  8. DALE [Concomitant]
     Indication: HYPERTENSION
     Dosage: 80 MG, 1X/DAY
     Route: 048
     Dates: start: 20151105, end: 20151214
  9. LIPITOR [Suspect]
     Active Substance: ATORVASTATIN CALCIUM
     Indication: CORONARY ARTERY OCCLUSION
     Dosage: 20 MG, 1X/DAY
     Route: 048
     Dates: start: 20150923, end: 20151214

REACTIONS (2)
  - Chest discomfort [Unknown]
  - Hepatic function abnormal [Recovering/Resolving]

NARRATIVE: CASE EVENT DATE: 20151214
